FAERS Safety Report 17984866 (Version 2)
Quarter: 2020Q3

REPORT INFORMATION
  Report Type: Spontaneous
  Country: SK (occurrence: SK)
  Receive Date: 20200706
  Receipt Date: 20200707
  Transmission Date: 20201103
  Serious: Yes (Other)
  Sender: FDA-Public Use
  Company Number: SK-JNJFOC-20200635484

PATIENT
  Sex: Male

DRUGS (4)
  1. DARATUMUMAB [Suspect]
     Active Substance: DARATUMUMAB
     Indication: PLASMA CELL MYELOMA
     Dosage: A TOTAL OF 9 DOSES, FOLLOWED BY EVERY 3 WEEKS (A TOTAL OF 5 DOSES) AND THEN SWITCHING TO EVERY 4 WEE
     Route: 042
     Dates: start: 201906, end: 202004
  2. BORTEZOMIB. [Suspect]
     Active Substance: BORTEZOMIB
     Indication: PLASMA CELL MYELOMA
     Dosage: DAY 1,4,8,11 DURING 8 CYCLES OF TREATMENT
     Route: 065
     Dates: start: 201906, end: 202004
  3. LENALIDOMIDE [Suspect]
     Active Substance: LENALIDOMIDE
     Indication: PLASMA CELL MYELOMA
     Route: 065
  4. DEXAMETHASONE. [Suspect]
     Active Substance: DEXAMETHASONE
     Indication: PLASMA CELL MYELOMA
     Dosage: 20 MG P.O. OR I.V. ON THE DAY AND THE NEXT DAY OF BORTEZOMIB ADMINISTRATION.
     Dates: start: 201906, end: 202004

REACTIONS (7)
  - Neutropenia [Unknown]
  - Infusion related reaction [Unknown]
  - Infection [Unknown]
  - Herpes zoster [Unknown]
  - Anaemia [Unknown]
  - Thrombocytopenia [Unknown]
  - Polyneuropathy [Unknown]
